FAERS Safety Report 7387544-8 (Version None)
Quarter: 2011Q1

REPORT INFORMATION
  Report Type: 
  Country: None (occurrence: None)
  Receive Date: 20110331
  Receipt Date: 20110325
  Transmission Date: 20110831
  Serious: Yes (Hospitalization)
  Sender: FDA-Public Use
  Company Number: FR-PFIZER INC-2011066571

PATIENT
  Age: 56 Year
  Sex: Female

DRUGS (4)
  1. XANAX [Suspect]
     Indication: DEPRESSION
     Dosage: 0.5 MG, 2X/DAY
     Route: 048
     Dates: start: 20070101
  2. LEVOTHYROX [Suspect]
     Indication: HYPOTHYROIDISM
     Dosage: 125 UG, 1X/DAY
     Route: 048
  3. NOCTAMID [Suspect]
     Indication: SLEEP DISORDER
     Dosage: 1 DF, 1X/DAY
     Route: 048
     Dates: start: 20070101
  4. SEROPLEX [Suspect]
     Indication: DEPRESSION
     Dosage: 20 MG, 1X/DAY
     Route: 048
     Dates: start: 20070101

REACTIONS (1)
  - PANCREATITIS ACUTE [None]
